FAERS Safety Report 16233458 (Version 1)
Quarter: 2019Q2

REPORT INFORMATION
  Report Type: Spontaneous
  Country: US (occurrence: US)
  Receive Date: 20190424
  Receipt Date: 20190424
  Transmission Date: 20190711
  Serious: Yes (Other)
  Sender: FDA-Public Use
  Company Number: US-HIKMA PHARMACEUTICALS USA INC.-US-H14001-19-02690

PATIENT
  Age: 35 Year
  Sex: Male

DRUGS (7)
  1. CASPOFUNGIN [Concomitant]
     Active Substance: CASPOFUNGIN
     Indication: ANTIFUNGAL TREATMENT
     Route: 065
  2. FUROSEMIDE. [Suspect]
     Active Substance: FUROSEMIDE
     Indication: PRODUCT USED FOR UNKNOWN INDICATION
     Route: 065
  3. POSACONAZOLE [Concomitant]
     Active Substance: POSACONAZOLE
     Indication: ANTIFUNGAL TREATMENT
     Route: 065
  4. COLCHICINE. [Suspect]
     Active Substance: COLCHICINE
     Indication: PRODUCT USED FOR UNKNOWN INDICATION
     Route: 065
  5. SPIRONOLACTONE. [Suspect]
     Active Substance: SPIRONOLACTONE
     Indication: PRODUCT USED FOR UNKNOWN INDICATION
     Route: 065
  6. AMPHOTERICIN B. [Suspect]
     Active Substance: AMPHOTERICIN B
     Indication: ANTIFUNGAL TREATMENT
     Route: 065
  7. SULFASALAZINE. [Concomitant]
     Active Substance: SULFASALAZINE
     Indication: COLITIS ULCERATIVE
     Route: 065

REACTIONS (1)
  - Acute kidney injury [Unknown]
